FAERS Safety Report 11468916 (Version 1)
Quarter: 2015Q3

REPORT INFORMATION
  Report Type: Spontaneous
  Country: US (occurrence: None)
  Receive Date: 20150828
  Receipt Date: 20150828
  Transmission Date: 20151125
  Serious: Yes (Hospitalization)
  Sender: FDA-Public Use
  Company Number: AMAG201400272

PATIENT
  Age: 27 Year
  Sex: Female
  Weight: 30.8 kg

DRUGS (3)
  1. FERAHEME [Suspect]
     Active Substance: FERUMOXYTOL NON-STOICHIOMETRIC MAGNETITE
     Indication: IRON DEFICIENCY ANAEMIA
     Route: 042
     Dates: start: 20140717, end: 20140717
  2. FERROUS SULFATE [Concomitant]
     Active Substance: FERROUS SULFATE\FERROUS SULFATE, DRIED
  3. LEVONORGESTREL W/ETHINYLESTRADIOL/MYZIRA (ETHINYLESTRADIOL, LEVONORGESTREL) [Concomitant]

REACTIONS (8)
  - Dyspnoea [None]
  - Dyskinesia [None]
  - Pallor [None]
  - Chest discomfort [None]
  - Chest pain [None]
  - Anaphylactic reaction [None]
  - Anxiety [None]
  - Dizziness [None]

NARRATIVE: CASE EVENT DATE: 20140717
